FAERS Safety Report 16541734 (Version 1)
Quarter: 2019Q3

REPORT INFORMATION
  Report Type: Spontaneous
  Country: FR (occurrence: FR)
  Receive Date: 20190708
  Receipt Date: 20190708
  Transmission Date: 20191004
  Serious: Yes (Other)
  Sender: FDA-Public Use
  Company Number: FR-MYLANLABS-2019M1063067

PATIENT
  Age: 50 Year
  Sex: Female

DRUGS (1)
  1. VERAPAMIL [Suspect]
     Active Substance: VERAPAMIL HYDROCHLORIDE
     Indication: HYPERTENSION
     Dosage: 1 DOSAGE FORM, QD

REACTIONS (17)
  - Abscess intestinal [Unknown]
  - Dyspepsia [Unknown]
  - Wrong technique in product usage process [Unknown]
  - Depression [Unknown]
  - Constipation [Unknown]
  - Arthralgia [Unknown]
  - Blood pressure abnormal [Unknown]
  - Heart rate decreased [Unknown]
  - Anxiety [Unknown]
  - Peripheral venous disease [Unknown]
  - Diverticulitis [Unknown]
  - Varicose vein [Unknown]
  - Tongue discolouration [Unknown]
  - Chest discomfort [Unknown]
  - Mood altered [Unknown]
  - Polydipsia [Unknown]
  - Decreased appetite [Unknown]
